FAERS Safety Report 8210877-X (Version None)
Quarter: 2012Q1

REPORT INFORMATION
  Report Type: 
  Country: None (occurrence: None)
  Receive Date: 20120315
  Receipt Date: 20120305
  Transmission Date: 20120608
  Serious: Yes (Other)
  Sender: FDA-Public Use
  Company Number: US-BAYER-2012-023549

PATIENT
  Sex: Male

DRUGS (1)
  1. YAZ [Suspect]

REACTIONS (1)
  - SMALL FOR DATES BABY [None]
